FAERS Safety Report 23051111 (Version 1)
Quarter: 2023Q4

REPORT INFORMATION
  Report Type: Spontaneous
  Country: US (occurrence: None)
  Receive Date: 20231009
  Receipt Date: 20231009
  Transmission Date: 20240110
  Serious: Yes (Hospitalization)
  Sender: FDA-Public Use
  Company Number: None

PATIENT
  Sex: Female

DRUGS (21)
  1. ZARXIO [Suspect]
     Active Substance: FILGRASTIM-SNDZ
     Indication: Breast cancer female
     Dosage: OTHER QUANTITY : 480MCG/0.8ML;?FREQUENCY : DAILY;?
     Route: 058
     Dates: start: 20230922
  2. ACETAMINOPHEN [Concomitant]
     Active Substance: ACETAMINOPHEN
  3. ALLEGRA ALRG SUS [Concomitant]
  4. ALPRAZOLAM [Concomitant]
     Active Substance: ALPRAZOLAM
  5. CAPECITABINE [Concomitant]
     Active Substance: CAPECITABINE
  6. CEPHALEXIN [Concomitant]
     Active Substance: CEPHALEXIN
  7. DEXAMETHASONE [Concomitant]
     Active Substance: DEXAMETHASONE
  8. FREESTY LIBR KIT 3 SENSOR [Concomitant]
  9. IBUPROFEN [Concomitant]
     Active Substance: IBUPROFEN
  10. JARDIANCE [Concomitant]
     Active Substance: EMPAGLIFLOZIN
  11. LEVOTHYROXINE [Concomitant]
     Active Substance: LEVOTHYROXINE
  12. LIDO/PRILOCN CRE [Concomitant]
  13. MELOXICAM [Concomitant]
     Active Substance: MELOXICAM
  14. VITAMINS [Concomitant]
     Active Substance: VITAMINS
  15. OMEPRAZOLE [Concomitant]
     Active Substance: OMEPRAZOLE
  16. ONDANSETRON [Concomitant]
  17. OZEMPIC [Concomitant]
     Active Substance: SEMAGLUTIDE
  18. POT CL MICRO [Concomitant]
  19. PREDNISONE [Concomitant]
     Active Substance: PREDNISONE
  20. PROCHLORPER [Concomitant]
  21. TYLENOL [Concomitant]
     Active Substance: ACETAMINOPHEN

REACTIONS (1)
  - Hospitalisation [None]
